FAERS Safety Report 8804932 (Version 2)
Quarter: 2015Q1

REPORT INFORMATION
  Report Type: Report from Study
  Country: US (occurrence: US)
  Receive Date: 20120924
  Receipt Date: 20150304
  Transmission Date: 20150721
  Serious: Yes (Hospitalization)
  Sender: FDA-Public Use
  Company Number: US-ROCHE-1098274

PATIENT
  Age: 70 Year
  Sex: Female

DRUGS (22)
  1. INTERFERON ALFA NOS [Concomitant]
     Active Substance: INTERFERON ALFA-2A OR INTERFERON ALFA-2B
     Dosage: 3 MILLION UNITS
     Route: 058
  2. DURAGESIC [Concomitant]
     Active Substance: FENTANYL
     Indication: PAIN
     Route: 065
  3. FOSAMAX [Concomitant]
     Active Substance: ALENDRONATE SODIUM
     Route: 065
  4. OSCAL [Concomitant]
     Active Substance: CALCIUM CARBONATE
     Route: 065
  5. SYNTHROID [Concomitant]
     Active Substance: LEVOTHYROXINE SODIUM
  6. AXID (UNITED STATES) [Concomitant]
  7. COUMADIN [Concomitant]
     Active Substance: WARFARIN SODIUM
  8. CELEXA (UNITED STATES) [Concomitant]
     Route: 065
  9. ZOFRAN [Concomitant]
     Active Substance: ONDANSETRON HYDROCHLORIDE
     Route: 048
  10. PROTONIX (UNITED STATES) [Concomitant]
     Indication: GASTROOESOPHAGEAL REFLUX DISEASE
     Route: 065
  11. TYLENOL [Concomitant]
     Active Substance: ACETAMINOPHEN
     Route: 048
  12. THALIDOMIDE [Concomitant]
     Active Substance: THALIDOMIDE
  13. CRESTOR [Concomitant]
     Active Substance: ROSUVASTATIN CALCIUM
     Dosage: AT BED TIME
     Route: 065
  14. ANZEMET [Concomitant]
     Active Substance: DOLASETRON MESYLATE
     Route: 048
  15. INTERFERON ALFA NOS [Concomitant]
     Active Substance: INTERFERON ALFA-2A OR INTERFERON ALFA-2B
     Dosage: 9 MILLION UNITS
     Route: 058
  16. ATIVAN [Concomitant]
     Active Substance: LORAZEPAM
     Route: 048
  17. DILAUDID [Concomitant]
     Active Substance: HYDROMORPHONE HYDROCHLORIDE
     Indication: BREAKTHROUGH PAIN
     Route: 048
  18. LEVOXYL [Concomitant]
     Active Substance: LEVOTHYROXINE SODIUM
     Route: 065
  19. ACTIQ [Concomitant]
     Active Substance: FENTANYL CITRATE
     Indication: PAIN
     Route: 065
  20. AVASTIN [Suspect]
     Active Substance: BEVACIZUMAB
     Indication: RENAL CANCER
     Route: 042
     Dates: start: 20050509
  21. MEGACE [Concomitant]
     Active Substance: MEGESTROL ACETATE
     Route: 048
  22. AVASTIN [Suspect]
     Active Substance: BEVACIZUMAB
     Indication: HAEMATOLOGICAL MALIGNANCY
     Route: 042

REACTIONS (22)
  - Dizziness [Unknown]
  - Dry skin [Unknown]
  - Lymphadenopathy [Unknown]
  - Bone pain [Unknown]
  - Gastroenteritis viral [Unknown]
  - Vomiting [Unknown]
  - Dehydration [Unknown]
  - Arthralgia [Unknown]
  - Pericardial effusion [Unknown]
  - Diarrhoea [Unknown]
  - Mucosal dryness [Unknown]
  - Pneumonia [Unknown]
  - Disease progression [Unknown]
  - Nausea [Unknown]
  - Back pain [Unknown]
  - Diverticulum [Unknown]
  - Off label use [Unknown]
  - Weight decreased [Unknown]
  - Intracardiac thrombus [Unknown]
  - Hiatus hernia [Unknown]
  - Fluid retention [Unknown]
  - Skin turgor decreased [Unknown]

NARRATIVE: CASE EVENT DATE: 20050629
